FAERS Safety Report 15452364 (Version 2)
Quarter: 2018Q4

REPORT INFORMATION
  Report Type: Report from Study
  Country: CO (occurrence: CO)
  Receive Date: 20181001
  Receipt Date: 20181018
  Transmission Date: 20190204
  Serious: Yes (Hospitalization)
  Sender: FDA-Public Use
  Company Number: CO-TAKEDA-2018TUS024628

PATIENT
  Sex: Female
  Weight: 47 kg

DRUGS (5)
  1. VEDOLIZUMAB [Suspect]
     Active Substance: VEDOLIZUMAB
     Indication: COLITIS ULCERATIVE
     Dosage: 300 MG, UNK
     Route: 042
     Dates: start: 20170120
  2. PREDNISONE. [Concomitant]
     Active Substance: PREDNISONE
     Dosage: UNK UNK, QD
  3. VEDOLIZUMAB [Suspect]
     Active Substance: VEDOLIZUMAB
     Dosage: 300 MG, UNK
     Route: 042
  4. METRONIDAZOLE. [Concomitant]
     Active Substance: METRONIDAZOLE
     Dosage: UNK UNK, Q8HR
  5. MESALAMINE. [Concomitant]
     Active Substance: MESALAMINE
     Dosage: UNK, QD

REACTIONS (8)
  - Discomfort [Unknown]
  - Nausea [Recovered/Resolved]
  - Arthralgia [Unknown]
  - Abdominal pain [Not Recovered/Not Resolved]
  - Diarrhoea [Recovered/Resolved]
  - Gastroenteritis [Unknown]
  - Asthenia [Not Recovered/Not Resolved]
  - Off label use [Unknown]
